FAERS Safety Report 12592260 (Version 2)
Quarter: 2016Q3

REPORT INFORMATION
  Report Type: Spontaneous
  Country: US (occurrence: US)
  Receive Date: 20160726
  Receipt Date: 20160831
  Transmission Date: 20161109
  Serious: Yes (Other)
  Sender: FDA-Public Use
  Company Number: GXBR2016US002319

PATIENT
  Sex: Female

DRUGS (4)
  1. GLATOPA [Suspect]
     Active Substance: GLATIRAMER ACETATE
     Indication: MULTIPLE SCLEROSIS
     Dosage: 20 MG, QD
     Route: 058
  2. PAROXETINE. [Concomitant]
     Active Substance: PAROXETINE
     Indication: DEPRESSED MOOD
     Dosage: 40 MG, UNK
  3. ARMOUR THYROID [Concomitant]
     Active Substance: THYROID, PORCINE
     Indication: HYPOTHYROIDISM
     Dosage: UNK DF, UNK
  4. SEROQUEL [Concomitant]
     Active Substance: QUETIAPINE FUMARATE
     Indication: INSOMNIA
     Dosage: 25 MG, QHS
     Route: 065

REACTIONS (5)
  - Macular oedema [Recovered/Resolved]
  - Increased upper airway secretion [Recovering/Resolving]
  - Hyperhidrosis [Recovering/Resolving]
  - Intraocular pressure increased [Recovered/Resolved]
  - Visual acuity reduced [Recovered/Resolved]
